FAERS Safety Report 8908598 (Version 6)
Quarter: 2012Q4

REPORT INFORMATION
  Report Type: 
  Country: CO (occurrence: CO)
  Receive Date: 20121114
  Receipt Date: 20121224
  Transmission Date: 20130627
  Serious: Yes (Death, Life-Threatening, Hospitalization, Other)
  Sender: FDA-Public Use
  Company Number: PHHY2012CO104701

PATIENT
  Sex: Female

DRUGS (4)
  1. GILENYA [Suspect]
     Indication: MULTIPLE SCLEROSIS
     Dosage: 0.5 mg, QD
     Route: 048
     Dates: start: 20120419, end: 20121101
  2. INTERFERON BETA 1B [Concomitant]
  3. SULBACTAM + AMPICILINA [Concomitant]
  4. VARICELLA ZOSTER VACCINE [Concomitant]

REACTIONS (14)
  - Coma [Fatal]
  - Respiratory failure [Fatal]
  - Encephalitis [Fatal]
  - Central nervous system lesion [Fatal]
  - CSF protein increased [Fatal]
  - Disease progression [Fatal]
  - Hypoxic-ischaemic encephalopathy [Fatal]
  - Dysarthria [Not Recovered/Not Resolved]
  - Leukocytosis [Not Recovered/Not Resolved]
  - Decreased appetite [Not Recovered/Not Resolved]
  - Urinary tract infection [Not Recovered/Not Resolved]
  - Pyrexia [Not Recovered/Not Resolved]
  - Pneumonia [Not Recovered/Not Resolved]
  - Headache [Not Recovered/Not Resolved]
